FAERS Safety Report 23397111 (Version 1)
Quarter: 2024Q1

REPORT INFORMATION
  Report Type: Spontaneous
  Country: US (occurrence: US)
  Receive Date: 20240112
  Receipt Date: 20240112
  Transmission Date: 20240409
  Serious: No
  Sender: FDA-Public Use
  Company Number: US-BIOVITRUM-2023-US-017343

PATIENT
  Age: 6 Month
  Sex: Female
  Weight: 6.12 kg

DRUGS (11)
  1. SYNAGIS [Suspect]
     Active Substance: PALIVIZUMAB
     Indication: Premature baby
     Dosage: ONCE A MONTH
     Route: 030
  2. SYNAGIS [Suspect]
     Active Substance: PALIVIZUMAB
     Indication: Bronchopulmonary dysplasia
  3. SYNAGIS [Suspect]
     Active Substance: PALIVIZUMAB
     Indication: Pneumonia
  4. SYNAGIS [Suspect]
     Active Substance: PALIVIZUMAB
     Indication: Asthma
  5. SYNAGIS [Suspect]
     Active Substance: PALIVIZUMAB
     Indication: Gastrooesophageal reflux disease
  6. SYNAGIS [Suspect]
     Active Substance: PALIVIZUMAB
     Indication: Feeding disorder
  7. SYNAGIS [Suspect]
     Active Substance: PALIVIZUMAB
     Indication: Pulmonary hypertension
  8. SYNAGIS [Suspect]
     Active Substance: PALIVIZUMAB
     Indication: Gastrostomy
  9. SYNAGIS [Suspect]
     Active Substance: PALIVIZUMAB
     Indication: Illness
  10. SYNAGIS [Suspect]
     Active Substance: PALIVIZUMAB
     Indication: Failure to thrive
  11. SYNAGIS [Suspect]
     Active Substance: PALIVIZUMAB
     Indication: Low birth weight baby

REACTIONS (1)
  - COVID-19 [Unknown]
